FAERS Safety Report 7064762-X (Version None)
Quarter: 2010Q4

REPORT INFORMATION
  Report Type: 
  Country: None (occurrence: None)
  Receive Date: 20101027
  Receipt Date: 19761013
  Transmission Date: 20110411
  Serious: Yes (Death)
  Sender: FDA-Public Use
  Company Number: US-ROCHE-760200045003

PATIENT
  Sex: Male
  Weight: 72.6 kg

DRUGS (4)
  1. VALIUM [Suspect]
     Route: 048
     Dates: start: 19761003, end: 19761003
  2. DALMANE [Suspect]
     Indication: INSOMNIA
     Route: 048
     Dates: start: 19760930, end: 19760930
  3. DALMANE [Suspect]
     Route: 048
     Dates: start: 19761002, end: 19761003
  4. THORAZINE [Concomitant]
     Route: 048
     Dates: start: 19761004, end: 19761006

REACTIONS (3)
  - CONFUSIONAL STATE [None]
  - DEATH [None]
  - LETHARGY [None]
